FAERS Safety Report 24158207 (Version 1)
Quarter: 2024Q3

REPORT INFORMATION
  Report Type: Spontaneous
  Country: CA (occurrence: CA)
  Receive Date: 20240731
  Receipt Date: 20240731
  Transmission Date: 20241016
  Serious: Yes (Life-Threatening, Hospitalization, Disabling, Other)
  Sender: BRISTOL MYERS SQUIBB
  Company Number: CA-BRISTOL-MYERS SQUIBB COMPANY-2024-121052

PATIENT
  Age: 44 Year
  Sex: Female
  Weight: 70 kg

DRUGS (126)
  1. ORENCIA [Suspect]
     Active Substance: ABATACEPT
     Indication: Rheumatoid arthritis
     Route: 042
  2. ORENCIA [Suspect]
     Active Substance: ABATACEPT
     Indication: Rheumatoid arthritis
     Route: 058
  3. ORENCIA [Suspect]
     Active Substance: ABATACEPT
     Route: 058
  4. ORENCIA [Suspect]
     Active Substance: ABATACEPT
     Indication: Rheumatoid arthritis
     Route: 015
  5. TRIAMCINOLONE ACETONIDE [Suspect]
     Active Substance: TRIAMCINOLONE ACETONIDE
     Indication: Rheumatoid arthritis
     Dosage: SUSPENSION INTRA-ARTICULAR
     Route: 014
  6. ACETAMINOPHEN AND CODEINE [Concomitant]
     Active Substance: ACETAMINOPHEN\CODEINE PHOSPHATE
     Indication: Product used for unknown indication
  7. ACTEMRA [Concomitant]
     Active Substance: TOCILIZUMAB
     Indication: Rheumatoid arthritis
     Route: 042
  8. ACTEMRA [Concomitant]
     Active Substance: TOCILIZUMAB
     Route: 042
  9. ACTEMRA [Concomitant]
     Active Substance: TOCILIZUMAB
     Route: 042
  10. ACTEMRA [Concomitant]
     Active Substance: TOCILIZUMAB
     Route: 048
  11. ACTEMRA [Concomitant]
     Active Substance: TOCILIZUMAB
     Route: 042
  12. ACTEMRA [Concomitant]
     Active Substance: TOCILIZUMAB
     Route: 042
  13. ACTEMRA [Concomitant]
     Active Substance: TOCILIZUMAB
     Route: 058
  14. ADALIMUMAB [Concomitant]
     Active Substance: ADALIMUMAB\ISOPROPYL ALCOHOL
     Indication: Rheumatoid arthritis
     Dosage: SOLUTION SUBCUTANEOUS
     Route: 058
  15. ALENDRONATE SODIUM [Concomitant]
     Active Substance: ALENDRONATE SODIUM
     Indication: Rheumatoid arthritis
     Route: 048
  16. DICLOFENAC SODIUM [Concomitant]
     Active Substance: DICLOFENAC\DICLOFENAC SODIUM
     Indication: Product used for unknown indication
     Route: 048
  17. DICLOFENAC SODIUM [Concomitant]
     Active Substance: DICLOFENAC\DICLOFENAC SODIUM
     Route: 047
  18. PREDNISONE [Concomitant]
     Active Substance: PREDNISONE
     Indication: Rheumatoid arthritis
     Route: 048
  19. PREDNISONE [Concomitant]
     Active Substance: PREDNISONE
     Route: 048
  20. PREDNISONE [Concomitant]
     Active Substance: PREDNISONE
  21. ARAVA [Concomitant]
     Active Substance: LEFLUNOMIDE
     Indication: Rheumatoid arthritis
  22. ARAVA [Concomitant]
     Active Substance: LEFLUNOMIDE
     Route: 048
  23. ATIVAN [Concomitant]
     Active Substance: LORAZEPAM
     Indication: Product used for unknown indication
  24. CAFFEINE [Concomitant]
     Active Substance: CAFFEINE
     Indication: Product used for unknown indication
  25. CELEBREX [Concomitant]
     Active Substance: CELECOXIB
     Indication: Arthritis
     Route: 048
  26. CETIRIZINE [Concomitant]
     Active Substance: CETIRIZINE HYDROCHLORIDE
     Indication: Rheumatoid arthritis
  27. CHLORAPREP [Concomitant]
     Active Substance: CHLORHEXIDINE GLUCONATE\ISOPROPYL ALCOHOL
     Indication: Product used for unknown indication
     Route: 061
  28. CHLORHEXIDINE [Concomitant]
     Active Substance: CHLORHEXIDINE
     Indication: Product used for unknown indication
     Route: 061
  29. CHLORHEXIDINE [Concomitant]
     Active Substance: CHLORHEXIDINE
     Route: 002
  30. CHLORHEXIDINE [Concomitant]
     Active Substance: CHLORHEXIDINE
     Route: 048
  31. CHOLECALCIFEROL [Concomitant]
     Active Substance: CHOLECALCIFEROL
     Indication: Product used for unknown indication
     Route: 016
  32. CIMZIA [Concomitant]
     Active Substance: CERTOLIZUMAB PEGOL
     Indication: Rheumatoid arthritis
     Route: 042
  33. CIMZIA [Concomitant]
     Active Substance: CERTOLIZUMAB PEGOL
     Route: 058
  34. CODEINE [Concomitant]
     Active Substance: CODEINE
     Indication: Product used for unknown indication
  35. CORTISONE [Concomitant]
     Active Substance: CORTISONE
     Indication: Rheumatoid arthritis
     Route: 058
  36. CORTISONE [Concomitant]
     Active Substance: CORTISONE
     Route: 003
  37. CORTISONE ACETATE [Concomitant]
     Active Substance: CORTISONE ACETATE
     Indication: Rheumatoid arthritis
     Route: 061
  38. COSENTYX [Concomitant]
     Active Substance: SECUKINUMAB
     Indication: Rheumatoid arthritis
  39. COSENTYX [Concomitant]
     Active Substance: SECUKINUMAB
     Indication: Psoriatic arthropathy
  40. DESOGESTREL AND ETHINYL ESTRADIOL [Concomitant]
     Active Substance: DESOGESTREL\ETHINYL ESTRADIOL
     Indication: Product used for unknown indication
  41. DESOXIMETASONE [Concomitant]
     Active Substance: DESOXIMETASONE
     Indication: Rheumatoid arthritis
     Route: 058
  42. DESOXIMETASONE [Concomitant]
     Active Substance: DESOXIMETASONE
     Route: 003
  43. DESOXIMETASONE [Concomitant]
     Active Substance: DESOXIMETASONE
     Route: 061
  44. DESOXIMETASONE [Concomitant]
     Active Substance: DESOXIMETASONE
     Route: 048
  45. DESOXIMETASONE [Concomitant]
     Active Substance: DESOXIMETASONE
     Route: 042
  46. DILTIAZEM [Concomitant]
     Active Substance: DILTIAZEM
     Indication: Product used for unknown indication
  47. DOXYCYCLINE HYCLATE [Concomitant]
     Active Substance: DOXYCYCLINE HYCLATE
     Indication: Product used for unknown indication
  48. EMEND [Concomitant]
     Active Substance: APREPITANT
     Indication: Product used for unknown indication
     Route: 042
  49. ENBREL [Concomitant]
     Active Substance: BENZYL ALCOHOL\ETANERCEPT
     Indication: Rheumatoid arthritis
     Route: 058
  50. ENBREL [Concomitant]
     Active Substance: BENZYL ALCOHOL\ETANERCEPT
     Indication: Psoriatic arthropathy
  51. ENBREL [Concomitant]
     Active Substance: BENZYL ALCOHOL\ETANERCEPT
     Route: 058
  52. ERYTHROMYCIN [Concomitant]
     Active Substance: ERYTHROMYCIN
     Indication: Product used for unknown indication
  53. FOLIC ACID [Concomitant]
     Active Substance: FOLIC ACID
     Indication: Rheumatoid arthritis
  54. FOLIC ACID [Concomitant]
     Active Substance: FOLIC ACID
  55. FOLIC ACID [Concomitant]
     Active Substance: FOLIC ACID
  56. FOLIC ACID [Concomitant]
     Active Substance: FOLIC ACID
  57. FOLIC ACID [Concomitant]
     Active Substance: FOLIC ACID
  58. FOLIC ACID [Concomitant]
     Active Substance: FOLIC ACID
     Route: 058
  59. GLUCOSAMINE [Concomitant]
     Active Substance: GLUCOSAMINE
     Indication: Product used for unknown indication
  60. HUMIRA [Concomitant]
     Active Substance: ADALIMUMAB
     Indication: Rheumatoid arthritis
     Route: 057
  61. HYDROCORTISONE [Concomitant]
     Active Substance: HYDROCORTISONE\HYDROCORTISONE ACETATE
     Indication: Rheumatoid arthritis
     Route: 048
  62. HYDROCORTISONE [Concomitant]
     Active Substance: HYDROCORTISONE\HYDROCORTISONE ACETATE
     Route: 061
  63. HYDROCORTISONE [Concomitant]
     Active Substance: HYDROCORTISONE\HYDROCORTISONE ACETATE
     Route: 058
  64. HYDROXYCHLOROQUINE [Concomitant]
     Active Substance: HYDROXYCHLOROQUINE
     Indication: Rheumatoid arthritis
     Route: 048
  65. HYDROXYCHLOROQUINE [Concomitant]
     Active Substance: HYDROXYCHLOROQUINE
  66. HYDROXYCHLOROQUINE [Concomitant]
     Active Substance: HYDROXYCHLOROQUINE
     Route: 048
  67. HYDROXYCHLOROQUINE [Concomitant]
     Active Substance: HYDROXYCHLOROQUINE
  68. IBUPROFEN [Concomitant]
     Active Substance: IBUPROFEN
     Indication: Product used for unknown indication
  69. INFLIXIMAB [Concomitant]
     Active Substance: INFLIXIMAB
     Indication: Rheumatoid arthritis
     Route: 042
  70. INFLIXIMAB [Concomitant]
     Active Substance: INFLIXIMAB
     Route: 042
  71. ISOPROPYL ALCOHOL [Concomitant]
     Active Substance: ISOPROPYL ALCOHOL
     Indication: Product used for unknown indication
     Dosage: LIQUID TOPICAL
     Route: 061
  72. LANSOPRAZOLE [Concomitant]
     Active Substance: LANSOPRAZOLE
     Indication: Product used for unknown indication
     Dosage: CAPSULE, DELAYED RELEASE
  73. LEVOTHYROXINE SODIUM [Concomitant]
     Active Substance: LEVOTHYROXINE SODIUM
     Indication: Product used for unknown indication
  74. LISINOPRIL [Concomitant]
     Active Substance: LISINOPRIL
     Indication: Product used for unknown indication
  75. LISINOPRIL [Concomitant]
     Active Substance: LISINOPRIL
     Indication: Product used for unknown indication
  76. FLUMETHASONE PIVALATE [Concomitant]
     Active Substance: FLUMETHASONE PIVALATE
     Indication: Product used for unknown indication
     Route: 003
  77. LORAZEPAM [Concomitant]
     Active Substance: LORAZEPAM
     Indication: Product used for unknown indication
  78. LYRICA [Concomitant]
     Active Substance: PREGABALIN
     Indication: Product used for unknown indication
  79. MAGNESIUM [Concomitant]
     Active Substance: MAGNESIUM
     Indication: Product used for unknown indication
  80. MELOXICAM [Concomitant]
     Active Substance: MELOXICAM
     Indication: Product used for unknown indication
  81. METHOTREXATE [Concomitant]
     Active Substance: METHOTREXATE
     Indication: Rheumatoid arthritis
     Route: 042
  82. METHOTREXATE [Concomitant]
     Active Substance: METHOTREXATE
     Route: 013
  83. METHOTREXATE [Concomitant]
     Active Substance: METHOTREXATE
     Route: 048
  84. METHOTREXATE [Concomitant]
     Active Substance: METHOTREXATE
     Route: 058
  85. METHOTREXATE [Concomitant]
     Active Substance: METHOTREXATE
     Route: 048
  86. METHOTREXATE [Concomitant]
     Active Substance: METHOTREXATE
     Route: 048
  87. METHOTREXATE [Concomitant]
     Active Substance: METHOTREXATE
     Route: 048
  88. MORPHINE [Concomitant]
     Active Substance: MORPHINE
     Indication: Product used for unknown indication
  89. MYCOPHENOLATE MOFETIL [Concomitant]
     Active Substance: MYCOPHENOLATE MOFETIL
     Indication: Product used for unknown indication
  90. NAPROXEN SODIUM [Concomitant]
     Active Substance: NAPROXEN\NAPROXEN SODIUM
     Indication: Rheumatoid arthritis
  91. OTEZLA [Concomitant]
     Active Substance: APREMILAST
     Indication: Product used for unknown indication
     Route: 048
  92. OXYCODONE [Concomitant]
     Active Substance: OXYCODONE
     Indication: Product used for unknown indication
  93. OXYCODONE [Concomitant]
     Active Substance: OXYCODONE
     Route: 042
  94. PANTOPRAZOLE [Concomitant]
     Active Substance: PANTOPRAZOLE
     Indication: Product used for unknown indication
     Route: 016
  95. PHTHALYLSULFATHIAZOLE [Concomitant]
     Active Substance: PHTHALYLSULFATHIAZOLE
     Indication: Rheumatoid arthritis
     Route: 048
  96. PHTHALYLSULFATHIAZOLE [Concomitant]
     Active Substance: PHTHALYLSULFATHIAZOLE
     Route: 048
  97. PHTHALYLSULFATHIAZOLE [Concomitant]
     Active Substance: PHTHALYLSULFATHIAZOLE
  98. PHTHALYLSULFATHIAZOLE [Concomitant]
     Active Substance: PHTHALYLSULFATHIAZOLE
     Route: 048
  99. PIROXICAM [Concomitant]
     Active Substance: PIROXICAM
     Indication: Product used for unknown indication
  100. PSEUDOEPHEDRINE [Concomitant]
     Active Substance: PSEUDOEPHEDRINE
     Indication: Sinusitis
  101. PSEUDOEPHEDRINE [Concomitant]
     Active Substance: PSEUDOEPHEDRINE
     Indication: Rheumatoid arthritis
  102. QUETIAPINE FUMARATE [Concomitant]
     Active Substance: QUETIAPINE FUMARATE
     Indication: Product used for unknown indication
  103. RAMIPRIL [Concomitant]
     Active Substance: RAMIPRIL
     Indication: Product used for unknown indication
  104. CETIRIZINE HYDROCHLORIDE\PSEUDOEPHEDRINE HYDROCHLORIDE [Concomitant]
     Active Substance: CETIRIZINE HYDROCHLORIDE\PSEUDOEPHEDRINE HYDROCHLORIDE
     Indication: Rheumatoid arthritis
     Dosage: TABLET (EXTENDED-RELEASE)
  105. RISEDRONATE SODIUM [Concomitant]
     Active Substance: RISEDRONATE SODIUM
     Indication: Product used for unknown indication
  106. RITUXIMAB [Concomitant]
     Active Substance: RITUXIMAB
     Indication: Rheumatoid arthritis
     Route: 042
  107. HYALURONIDASE (HUMAN RECOMBINANT)\RITUXIMAB [Concomitant]
     Active Substance: HYALURONIDASE (HUMAN RECOMBINANT)\RITUXIMAB
     Indication: Product used for unknown indication
     Route: 058
  108. DIETARY SUPPLEMENT\HERBALS [Concomitant]
     Active Substance: DIETARY SUPPLEMENT\HERBALS
     Indication: Product used for unknown indication
     Route: 048
  109. ALBUTEROL [Concomitant]
     Active Substance: ALBUTEROL
     Indication: Product used for unknown indication
  110. FISH OIL [Concomitant]
     Active Substance: FISH OIL
     Indication: Product used for unknown indication
  111. SIMPONI [Concomitant]
     Active Substance: GOLIMUMAB
     Indication: Rheumatoid arthritis
     Dosage: SOLUTION SUBCUTANEOUS
     Route: 058
  112. STELARA [Concomitant]
     Active Substance: USTEKINUMAB
     Indication: Rheumatoid arthritis
     Dosage: SOLUTION SUBCUTANEOUS
     Route: 058
  113. STELARA [Concomitant]
     Active Substance: USTEKINUMAB
     Dosage: SOLUTION SUBCUTANEOUS
     Route: 042
  114. SULFAMETHOXAZOLE AND TRIMETHOPRIM [Concomitant]
     Active Substance: SULFAMETHOXAZOLE\TRIMETHOPRIM
     Indication: Product used for unknown indication
  115. SULFASALAZINE [Concomitant]
     Active Substance: SULFASALAZINE
     Indication: Rheumatoid arthritis
     Route: 048
  116. SULFASALAZINE [Concomitant]
     Active Substance: SULFASALAZINE
     Route: 048
  117. SULFASALAZINE [Concomitant]
     Active Substance: SULFASALAZINE
     Route: 048
  118. SULFASALAZINE [Concomitant]
     Active Substance: SULFASALAZINE
  119. TRAMADOL HYDROCHLORIDE [Concomitant]
     Active Substance: TRAMADOL HYDROCHLORIDE
     Indication: Product used for unknown indication
  120. TYLENOL [Concomitant]
     Active Substance: ACETAMINOPHEN
     Indication: Product used for unknown indication
  121. TYLENOL WITH CODEINE [Concomitant]
     Active Substance: ACETAMINOPHEN\CODEINE PHOSPHATE
     Indication: Product used for unknown indication
  122. VITAMIN C [Concomitant]
     Active Substance: ASCORBIC ACID
     Indication: Product used for unknown indication
  123. XELJANZ [Concomitant]
     Active Substance: TOFACITINIB CITRATE
     Indication: Rheumatoid arthritis
  124. XELJANZ [Concomitant]
     Active Substance: TOFACITINIB CITRATE
  125. ZESTRIL [Concomitant]
     Active Substance: LISINOPRIL
     Indication: Product used for unknown indication
  126. ZOPICLONE [Concomitant]
     Active Substance: ZOPICLONE
     Indication: Product used for unknown indication

REACTIONS (26)
  - Abdominal pain upper [Unknown]
  - Anti-cyclic citrullinated peptide antibody [Unknown]
  - Breast cancer stage III [Unknown]
  - Bursitis [Unknown]
  - C-reactive protein abnormal [Unknown]
  - Confusional state [Unknown]
  - Diarrhoea [Unknown]
  - Dizziness [Unknown]
  - General physical health deterioration [Unknown]
  - Insomnia [Unknown]
  - Joint range of motion decreased [Unknown]
  - Memory impairment [Unknown]
  - Mobility decreased [Unknown]
  - Nausea [Unknown]
  - Oedema [Unknown]
  - Oedema peripheral [Unknown]
  - Pain in extremity [Unknown]
  - Pneumonia [Unknown]
  - Pulmonary fibrosis [Unknown]
  - Rheumatoid factor positive [Unknown]
  - Sleep disorder [Unknown]
  - Thrombocytopenia [Unknown]
  - Vomiting [Unknown]
  - Wheezing [Unknown]
  - Adverse event [Unknown]
  - Hospitalisation [Unknown]
